FAERS Safety Report 9483752 (Version 2)
Quarter: 2013Q3

REPORT INFORMATION
  Report Type: Spontaneous
  Country: CA (occurrence: CA)
  Receive Date: 20130828
  Receipt Date: 20130828
  Transmission Date: 20140515
  Serious: Yes (Hospitalization)
  Sender: FDA-Public Use
  Company Number: CA-AMGEN-KDL292922

PATIENT
  Age: 73 Year
  Sex: Female
  Weight: 49.9 kg

DRUGS (1)
  1. ENBREL [Suspect]
     Indication: RHEUMATOID ARTHRITIS
     Dosage: UNK UNK, QWK
     Route: 065
     Dates: start: 20080612

REACTIONS (5)
  - Back pain [Unknown]
  - Lung infection [Recovered/Resolved]
  - White blood cell count increased [Unknown]
  - Injection site reaction [Unknown]
  - Fatigue [Unknown]
